FAERS Safety Report 12886410 (Version 1)
Quarter: 2016Q4

REPORT INFORMATION
  Report Type: Spontaneous
  Country: US (occurrence: US)
  Receive Date: 20161026
  Receipt Date: 20161026
  Transmission Date: 20170207
  Serious: No
  Sender: FDA-Public Use
  Company Number: US-ENDO PHARMACEUTICALS INC.-2015-004488

PATIENT
  Sex: Male

DRUGS (2)
  1. VALSTAR [Suspect]
     Active Substance: VALRUBICIN
     Indication: BLADDER CANCER
     Route: 043
     Dates: start: 20151116
  2. VALSTAR [Suspect]
     Active Substance: VALRUBICIN
     Route: 043
     Dates: start: 20151109, end: 20151109

REACTIONS (2)
  - Drug dose omission [Not Recovered/Not Resolved]
  - Prostatic disorder [Not Recovered/Not Resolved]

NARRATIVE: CASE EVENT DATE: 20151124
